FAERS Safety Report 10832700 (Version 1)
Quarter: 2015Q1

REPORT INFORMATION
  Report Type: Report from Study
  Country: US (occurrence: US)
  Receive Date: 20150219
  Receipt Date: 20150219
  Transmission Date: 20150721
  Serious: No
  Sender: FDA-Public Use
  Company Number: US-ABBVIE-14P-163-1196403-00

PATIENT
  Age: 34 Year
  Sex: Male
  Weight: 77.18 kg

DRUGS (5)
  1. SULFASALAZINE. [Concomitant]
     Active Substance: SULFASALAZINE
     Indication: CROHN^S DISEASE
  2. PANTOPRAZOLE [Concomitant]
     Active Substance: PANTOPRAZOLE SODIUM
     Indication: DYSPEPSIA
  3. HUMIRA [Suspect]
     Active Substance: ADALIMUMAB
     Dates: start: 2013
  4. HUMIRA [Suspect]
     Active Substance: ADALIMUMAB
     Indication: CROHN^S DISEASE
     Dosage: INITIAL DOSE
     Dates: start: 201307, end: 201307
  5. HUMIRA [Suspect]
     Active Substance: ADALIMUMAB
     Dosage: ON DAY 15
     Dates: start: 2013, end: 2013

REACTIONS (6)
  - Intervertebral disc protrusion [Not Recovered/Not Resolved]
  - Gait disturbance [Not Recovered/Not Resolved]
  - Nerve root compression [Not Recovered/Not Resolved]
  - Sciatica [Not Recovered/Not Resolved]
  - Intervertebral disc protrusion [Not Recovered/Not Resolved]
  - Nerve root compression [Not Recovered/Not Resolved]

NARRATIVE: CASE EVENT DATE: 20131025
